FAERS Safety Report 7495977-4 (Version None)
Quarter: 2011Q2

REPORT INFORMATION
  Report Type: 
  Country: None (occurrence: None)
  Receive Date: 20110523
  Receipt Date: 20110517
  Transmission Date: 20111010
  Serious: Yes (Death)
  Sender: FDA-Public Use
  Company Number: BE-PFIZER INC-2011106156

PATIENT

DRUGS (1)
  1. ECALTA [Suspect]
     Route: 042

REACTIONS (1)
  - DEATH [None]
